FAERS Safety Report 8461359-1 (Version None)
Quarter: 2012Q2

REPORT INFORMATION
  Report Type: 
  Country: None (occurrence: None)
  Receive Date: 20120625
  Receipt Date: 20120613
  Transmission Date: 20120825
  Serious: Yes (Hospitalization, Other)
  Sender: FDA-Public Use
  Company Number: US-JNJFOC-20120607018

PATIENT
  Sex: Female
  Weight: 60.33 kg

DRUGS (4)
  1. REMICADE [Suspect]
     Indication: RHEUMATOID ARTHRITIS
     Route: 042
     Dates: start: 20081020, end: 20120113
  2. METHOTREXATE [Suspect]
     Indication: RHEUMATOID ARTHRITIS
     Dosage: DOSE: 0.3 CC
     Route: 058
     Dates: start: 20030101, end: 20120601
  3. REMICADE [Suspect]
     Route: 042
     Dates: start: 20050101, end: 20070101
  4. BLOOD PRESSURE MEDICATION NOS [Concomitant]
     Indication: HYPERTENSION
     Route: 048

REACTIONS (6)
  - BLOOD CREATININE INCREASED [None]
  - OSTEOMYELITIS [None]
  - LYMPHADENOPATHY [None]
  - ABNORMAL LOSS OF WEIGHT [None]
  - ARTHRALGIA [None]
  - PROTEIN TOTAL INCREASED [None]
